FAERS Safety Report 4662614-3 (Version None)
Quarter: 2005Q2

REPORT INFORMATION
  Report Type: 
  Country: None (occurrence: None)
  Receive Date: 20050516
  Receipt Date: 20050510
  Transmission Date: 20051028
  Serious: Yes (Life-Threatening, Other)
  Sender: FDA-Public Use
  Company Number: 2005SE02815

PATIENT
  Age: 47 Year
  Sex: Female

DRUGS (7)
  1. SEROQUEL [Suspect]
     Indication: SCHIZOPHRENIA, UNDIFFERENTIATED TYPE
     Dosage: UNKNOWN DOSE
     Route: 048
     Dates: start: 20040607
  2. SEROQUEL [Suspect]
     Route: 048
     Dates: end: 20050323
  3. SEROQUEL [Suspect]
     Route: 048
     Dates: start: 20050323
  4. SEROQUEL [Suspect]
     Dosage: DECREASED GRADUALLY
     Route: 048
     Dates: end: 20050503
  5. DEPRAKINE DEPOT [Concomitant]
     Indication: SCHIZOPHRENIA, UNDIFFERENTIATED TYPE
     Route: 048
     Dates: start: 20040608, end: 20050323
  6. ORGAMETRIL [Concomitant]
     Route: 048
     Dates: end: 20050419
  7. RISOLID [Concomitant]
     Indication: SCHIZOPHRENIA, UNDIFFERENTIATED TYPE
     Route: 048

REACTIONS (4)
  - ALANINE AMINOTRANSFERASE INCREASED [None]
  - ASPARTATE AMINOTRANSFERASE INCREASED [None]
  - HEPATIC ENZYME INCREASED [None]
  - JAUNDICE [None]
